FAERS Safety Report 25681818 (Version 1)
Quarter: 2025Q3

REPORT INFORMATION
  Report Type: Report from Study
  Country: US (occurrence: US)
  Receive Date: 20250814
  Receipt Date: 20250814
  Transmission Date: 20251021
  Serious: Yes (Hospitalization, Other)
  Sender: MALLINCKRODT
  Company Number: US-MALLINCKRODT-MNK202500687

PATIENT
  Sex: Female

DRUGS (3)
  1. CORTICOTROPIN [Suspect]
     Active Substance: CORTICOTROPIN
     Indication: Systemic lupus erythematosus
  2. SAPHNELO [Concomitant]
     Active Substance: ANIFROLUMAB-FNIA
  3. MOUNJARO [Concomitant]
     Active Substance: TIRZEPATIDE
     Indication: Diabetes mellitus

REACTIONS (5)
  - Hospitalisation [Unknown]
  - Systemic lupus erythematosus [Not Recovered/Not Resolved]
  - Stress [Not Recovered/Not Resolved]
  - Bone loss [Unknown]
  - Fatigue [Unknown]
